FAERS Safety Report 17752803 (Version 1)
Quarter: 2020Q2

REPORT INFORMATION
  Report Type: Spontaneous
  Country: FR (occurrence: FR)
  Receive Date: 20200506
  Receipt Date: 20200506
  Transmission Date: 20200714
  Serious: Yes (Life-Threatening)
  Sender: FDA-Public Use
  Company Number: FR-MYLANLABS-2020M1045185

PATIENT
  Age: 70 Year
  Sex: Male

DRUGS (3)
  1. TAREG [Suspect]
     Active Substance: VALSARTAN
     Indication: HYPERTENSION
     Dosage: UNK
     Route: 048
     Dates: end: 20200313
  2. AUGMENTIN [Suspect]
     Active Substance: AMOXICILLIN\CLAVULANATE POTASSIUM
     Indication: INFLUENZA LIKE ILLNESS
     Dosage: UNK
     Route: 048
     Dates: start: 20200309, end: 20200313
  3. PREDNISONE. [Suspect]
     Active Substance: PREDNISONE
     Indication: MYELODYSPLASTIC SYNDROME
     Dosage: 5 MILLIGRAM, QD
     Route: 048
     Dates: end: 20200313

REACTIONS (11)
  - Acute respiratory distress syndrome [Recovered/Resolved]
  - Diarrhoea [Recovered/Resolved]
  - Coronavirus test positive [Recovered/Resolved]
  - Coronavirus infection [Recovered/Resolved]
  - Condition aggravated [Recovered/Resolved]
  - Thrombocytopenia [Not Recovered/Not Resolved]
  - Lymphopenia [Not Recovered/Not Resolved]
  - Acute kidney injury [Recovered/Resolved]
  - C-reactive protein increased [Recovered/Resolved]
  - Influenza like illness [Recovered/Resolved]
  - Lung disorder [Recovered/Resolved]

NARRATIVE: CASE EVENT DATE: 202003
